FAERS Safety Report 25186058 (Version 2)
Quarter: 2025Q2

REPORT INFORMATION
  Report Type: Report from Study
  Country: US (occurrence: US)
  Receive Date: 20250410
  Receipt Date: 20250514
  Transmission Date: 20250716
  Serious: Yes (Hospitalization, Other)
  Sender: GILEAD
  Company Number: US-GILEAD-2025-0710042

PATIENT
  Sex: Female

DRUGS (2)
  1. AZTREONAM LYSINE [Suspect]
     Active Substance: AZTREONAM LYSINE
     Indication: Cystic fibrosis
     Dosage: INHALE 1 VIAL (1 ML) VIA ALTERA NEBULIZER THREE TIMES DAILY, 28 DAYS ON AND 28 DAYS OFF FOR CYSTIC F
     Route: 055
  2. AZTREONAM LYSINE [Suspect]
     Active Substance: AZTREONAM LYSINE
     Indication: Pseudomonas infection

REACTIONS (2)
  - Infection [Unknown]
  - Cystic fibrosis [Unknown]
